FAERS Safety Report 15467527 (Version 1)
Quarter: 2018Q4

REPORT INFORMATION
  Report Type: Spontaneous
  Country: US (occurrence: US)
  Receive Date: 20181005
  Receipt Date: 20181005
  Transmission Date: 20190204
  Serious: No
  Sender: FDA-Public Use
  Company Number: US-SHIRE-US201837603

PATIENT
  Sex: Female

DRUGS (1)
  1. XIIDRA [Suspect]
     Active Substance: LIFITEGRAST
     Indication: DRY EYE
     Route: 047

REACTIONS (5)
  - Vision blurred [Recovered/Resolved]
  - Drug effect decreased [Unknown]
  - Upper-airway cough syndrome [Unknown]
  - Instillation site reaction [Recovered/Resolved]
  - Product quality issue [Unknown]
